FAERS Safety Report 9209492 (Version 1)
Quarter: 2013Q2

REPORT INFORMATION
  Report Type: Spontaneous
  Country: US (occurrence: None)
  Receive Date: 20130403
  Receipt Date: 20130403
  Transmission Date: 20140414
  Serious: Yes (Other)
  Sender: FDA-Public Use
  Company Number: None

PATIENT
  Age: 75 Year
  Sex: Female
  Weight: 72.58 kg

DRUGS (1)
  1. PROLIA [Suspect]
     Indication: OSTEOPOROSIS
     Dosage: 2X PER YR INJECTION
     Dates: start: 20121212

REACTIONS (4)
  - Alopecia [None]
  - Onychoclasis [None]
  - Onychoclasis [None]
  - Arthralgia [None]
